FAERS Safety Report 9775819 (Version 1)
Quarter: 2013Q4

REPORT INFORMATION
  Report Type: Spontaneous
  Country: SG (occurrence: SG)
  Receive Date: 20131220
  Receipt Date: 20131220
  Transmission Date: 20140711
  Serious: Yes (Hospitalization)
  Sender: FDA-Public Use
  Company Number: SG-JNJFOC-20131210309

PATIENT
  Age: 27 Year
  Sex: Female

DRUGS (2)
  1. TRAMADOL HYDROCHLORIDE [Suspect]
     Indication: HEADACHE
     Dosage: 2 DF-6 DF
     Route: 048
  2. TRAMADOL HYDROCHLORIDE [Suspect]
     Indication: HEADACHE
     Route: 048

REACTIONS (6)
  - Screaming [Unknown]
  - Tachycardia [Unknown]
  - Confusional state [Unknown]
  - Tremor [Unknown]
  - Agitation [Unknown]
  - Overdose [Unknown]
